FAERS Safety Report 6711077-2 (Version None)
Quarter: 2010Q2

REPORT INFORMATION
  Report Type: 
  Country: None (occurrence: None)
  Receive Date: 20100505
  Receipt Date: 20090706
  Transmission Date: 20101027
  Serious: No
  Sender: FDA-Public Use
  Company Number: US-KINGPHARMUSA00001-K200900827

PATIENT

DRUGS (2)
  1. AVINZA [Suspect]
     Dosage: UNK
  2. AVINZA [Suspect]
     Dosage: UNK

REACTIONS (1)
  - RASH [None]
